FAERS Safety Report 10142087 (Version 2)
Quarter: 2014Q2

REPORT INFORMATION
  Report Type: Report from Study
  Country: US (occurrence: US)
  Receive Date: 20140429
  Receipt Date: 20140506
  Transmission Date: 20141212
  Serious: Yes (Other)
  Sender: FDA-Public Use
  Company Number: US-BAXTER-2014BAX020610

PATIENT
  Sex: Male

DRUGS (1)
  1. ADVATE [Suspect]
     Indication: HAEMOPHILIA
     Route: 065

REACTIONS (3)
  - Joint injury [Unknown]
  - Multiple fractures [Unknown]
  - Muscle contusion [Unknown]
